FAERS Safety Report 4498860-1 (Version None)
Quarter: 2004Q4

REPORT INFORMATION
  Report Type: 
  Country: None (occurrence: None)
  Receive Date: 20041110
  Receipt Date: 20041110
  Transmission Date: 20050328
  Serious: Yes (Hospitalization)
  Sender: FDA-Public Use
  Company Number: None

PATIENT
  Age: 66 Year
  Sex: Male
  Weight: 85 kg

DRUGS (7)
  1. WARFARIN SODIUM [Suspect]
     Indication: INTRACARDIAC THROMBUS
     Dosage: 7.5 MG PO Q DAILY
     Route: 048
     Dates: start: 20040517, end: 20040729
  2. PLAVIX [Suspect]
     Dosage: 75 MG PO Q DAILY
     Route: 048
     Dates: start: 20040211, end: 20040729
  3. ASPIRIN [Suspect]
     Dosage: 81 MG PO QDAILY
     Route: 048
  4. SIMVASTATIN [Concomitant]
  5. FOSINOPRIL SODIUM [Concomitant]
  6. METOPROLOL [Concomitant]
  7. NITROGLYCERIN [Concomitant]

REACTIONS (5)
  - BARRETT'S OESOPHAGUS [None]
  - DIZZINESS [None]
  - INTERNATIONAL NORMALISED RATIO INCREASED [None]
  - ORTHOSTATIC HYPOTENSION [None]
  - UPPER GASTROINTESTINAL HAEMORRHAGE [None]
